FAERS Safety Report 7503998-8 (Version None)
Quarter: 2011Q2

REPORT INFORMATION
  Report Type: 
  Country: None (occurrence: None)
  Receive Date: 20110524
  Receipt Date: 20110524
  Transmission Date: 20111010
  Serious: Yes (Other)
  Sender: FDA-Public Use
  Company Number: None

PATIENT
  Age: 58 Year
  Sex: Male
  Weight: 73.2 kg

DRUGS (2)
  1. DOCETAXEL [Suspect]
  2. DOCETAXEL [Suspect]
     Indication: OESOPHAGEAL CARCINOMA
     Dosage: 147.8MG X1 IV
     Route: 042

REACTIONS (1)
  - INFUSION RELATED REACTION [None]
